FAERS Safety Report 5309462-9 (Version None)
Quarter: 2007Q2

REPORT INFORMATION
  Report Type: 
  Country: None (occurrence: None)
  Receive Date: 20070427
  Receipt Date: 20070418
  Transmission Date: 20071010
  Serious: Yes (Hospitalization, Other)
  Sender: FDA-Public Use
  Company Number: PHFR2007GB01062

PATIENT
  Age: 55 Year
  Sex: Male

DRUGS (1)
  1. LAMISIL [Suspect]
     Indication: ONYCHOMYCOSIS
     Dosage: UNK, UNK
     Route: 065
     Dates: start: 20070101, end: 20070201

REACTIONS (2)
  - RENAL FAILURE CHRONIC [None]
  - VASCULITIS [None]
